FAERS Safety Report 8846831 (Version 5)
Quarter: 2014Q2

REPORT INFORMATION
  Report Type: Spontaneous
  Country: US (occurrence: US)
  Receive Date: 20121018
  Receipt Date: 20140404
  Transmission Date: 20141212
  Serious: Yes (Hospitalization, Other)
  Sender: FDA-Public Use
  Company Number: US-009507513-1210USA003954

PATIENT
  Sex: Female

DRUGS (4)
  1. FOSAMAX [Suspect]
     Indication: OSTEOPOROSIS
     Dosage: 10 MG, UNK
     Route: 048
     Dates: start: 200004, end: 2009
  2. FOSAMAX [Suspect]
     Dosage: 35 MG, UNK
     Route: 048
     Dates: end: 2009
  3. FOSAMAX [Suspect]
     Dosage: 70 MG, UNK
     Route: 048
     Dates: end: 2009
  4. ALENDRONATE SODIUM [Suspect]
     Indication: OSTEOPOROSIS
     Dosage: 70 MG, UNK
     Route: 048
     Dates: start: 2009, end: 201205

REACTIONS (26)
  - Intramedullary rod insertion [Unknown]
  - Cardiac pacemaker insertion [Unknown]
  - Fall [Unknown]
  - Cholecystectomy [Unknown]
  - Tonsillectomy [Unknown]
  - Rhabdomyolysis [Unknown]
  - Rotator cuff repair [Unknown]
  - Rotator cuff repair [Unknown]
  - Hypokalaemia [Recovered/Resolved]
  - Ischaemic hepatitis [Unknown]
  - Liver function test abnormal [Unknown]
  - Blood creatine phosphokinase increased [Unknown]
  - Femur fracture [Unknown]
  - Low turnover osteopathy [Unknown]
  - Arthritis [Unknown]
  - Urinary tract infection enterococcal [Unknown]
  - Diabetes mellitus [Unknown]
  - Coronary artery disease [Unknown]
  - Hysterectomy [Unknown]
  - Coronary arterial stent insertion [Unknown]
  - Presyncope [Unknown]
  - Appendicectomy [Unknown]
  - Troponin increased [Unknown]
  - Muscular weakness [Unknown]
  - Blood magnesium decreased [Recovered/Resolved]
  - Blood pressure increased [Unknown]
